FAERS Safety Report 21405212 (Version 2)
Quarter: 2022Q4

REPORT INFORMATION
  Report Type: Report from Study
  Country: CA (occurrence: CA)
  Receive Date: 20221004
  Receipt Date: 20221203
  Transmission Date: 20230112
  Serious: Yes (Hospitalization, Other)
  Sender: FDA-Public Use
  Company Number: CA-ABBVIE-22K-028-4349200-00

PATIENT
  Sex: Female
  Weight: 81.2 kg

DRUGS (9)
  1. HUMIRA [Suspect]
     Active Substance: ADALIMUMAB
     Indication: Hidradenitis
     Route: 058
  2. HUMIRA [Suspect]
     Active Substance: ADALIMUMAB
     Indication: Hidradenitis
     Route: 058
     Dates: start: 20210422
  3. HUMIRA [Suspect]
     Active Substance: ADALIMUMAB
     Route: 058
  4. WELLBUTRIN XL [Concomitant]
     Active Substance: BUPROPION HYDROCHLORIDE
     Indication: Depression
     Route: 048
     Dates: start: 2020
  5. CLONAZEPAM [Concomitant]
     Active Substance: CLONAZEPAM
     Indication: Anxiety
     Route: 048
     Dates: start: 2020
  6. METOPROLOL [Concomitant]
     Active Substance: METOPROLOL
     Indication: Migraine
     Route: 048
     Dates: start: 2020
  7. LAMOTRIGINE [Concomitant]
     Active Substance: LAMOTRIGINE
     Indication: Bipolar II disorder
     Route: 048
     Dates: start: 2020
  8. TOPIRAMATE [Concomitant]
     Active Substance: TOPIRAMATE
     Indication: Bipolar II disorder
     Dates: start: 2020
  9. CLORPACTIN [Concomitant]
     Indication: Anxiety
     Route: 048
     Dates: start: 2020

REACTIONS (20)
  - Skin mass [Unknown]
  - Illness [Unknown]
  - Illness [Recovered/Resolved]
  - Skin discolouration [Unknown]
  - Skin haemorrhage [Unknown]
  - Pharyngitis streptococcal [Unknown]
  - Wound [Unknown]
  - Hidradenitis [Not Recovered/Not Resolved]
  - COVID-19 [Unknown]
  - Influenza [Unknown]
  - Bile duct stone [Unknown]
  - Biliary colic [Unknown]
  - Stomach mass [Recovering/Resolving]
  - Alopecia [Unknown]
  - Effusion [Unknown]
  - Intentional product misuse [Unknown]
  - Haemorrhage [Unknown]
  - Pancreatitis [Unknown]
  - Yellow skin [Unknown]
  - Gallbladder disorder [Unknown]

NARRATIVE: CASE EVENT DATE: 20220101
